FAERS Safety Report 24463629 (Version 1)
Quarter: 2024Q4

REPORT INFORMATION
  Report Type: Spontaneous
  Country: US (occurrence: US)
  Receive Date: 20241018
  Receipt Date: 20241018
  Transmission Date: 20250115
  Serious: No
  Sender: ROCHE
  Company Number: US-ROCHE-10000108175

PATIENT
  Sex: Female

DRUGS (2)
  1. ACTEMRA [Suspect]
     Active Substance: TOCILIZUMAB
     Indication: Rheumatoid arthritis
     Dosage: STRENGTH : 400MG/20ML
     Route: 042
     Dates: start: 202409
  2. ORENCIA [Concomitant]
     Active Substance: ABATACEPT

REACTIONS (1)
  - Upper respiratory tract infection [Unknown]
